FAERS Safety Report 8683165 (Version 2)
Quarter: 2013Q4

REPORT INFORMATION
  Report Type: Spontaneous
  Country: US (occurrence: US)
  Receive Date: 20120726
  Receipt Date: 20131031
  Transmission Date: 20140711
  Serious: No
  Sender: FDA-Public Use
  Company Number: US-009507513-2012SP027543

PATIENT
  Age: 53 Year
  Sex: Female

DRUGS (5)
  1. NASONEX [Suspect]
     Indication: HYPERSENSITIVITY
     Dosage: 2 SPRAYS DAILY IN EACH NOSTRIL
     Route: 045
     Dates: start: 2010
  2. ZANTAC [Concomitant]
  3. PROVENTIL [Concomitant]
  4. OMEGA-3 MARINE TRIGLYCERIDES [Concomitant]
  5. LOVASTATIN [Concomitant]

REACTIONS (2)
  - Drug dependence [Not Recovered/Not Resolved]
  - Rhinorrhoea [Not Recovered/Not Resolved]
